FAERS Safety Report 8321678-6 (Version None)
Quarter: 2012Q2

REPORT INFORMATION
  Report Type: 
  Country: None (occurrence: None)
  Receive Date: 20120430
  Receipt Date: 20120419
  Transmission Date: 20120825
  Serious: Yes (Hospitalization)
  Sender: FDA-Public Use
  Company Number: KR-ASTRAZENECA-2012SE23614

PATIENT
  Age: 28161 Day
  Sex: Male

DRUGS (9)
  1. ASPIRIN [Concomitant]
     Route: 048
  2. VALSARTAN [Concomitant]
     Indication: HYPERTENSION
     Route: 048
  3. VALSARTAN [Concomitant]
     Indication: MYOCARDIAL INFARCTION
     Route: 048
  4. TAMIPOOL [Concomitant]
     Indication: VITAMIN SUPPLEMENTATION
     Route: 042
     Dates: start: 20120407, end: 20120407
  5. AZD6140 [Suspect]
     Indication: CORONARY ARTERY DISEASE
     Route: 048
     Dates: start: 20110425, end: 20120405
  6. AMLODIPINE BESYLATE [Concomitant]
     Indication: HYPERTENSION
     Route: 048
  7. BISOPROLOL FUMARATE [Concomitant]
     Indication: MYOCARDIAL INFARCTION
     Route: 048
  8. ATORVASTATIN CALCIUM [Concomitant]
     Indication: HYPERLIPIDAEMIA
     Route: 048
  9. DEXTROSE [Concomitant]
     Indication: MALNUTRITION
     Route: 042
     Dates: start: 20120406, end: 20120407

REACTIONS (1)
  - HAEMORRHOIDS [None]
